FAERS Safety Report 7299670-2 (Version None)
Quarter: 2011Q1

REPORT INFORMATION
  Report Type: 
  Country: None (occurrence: None)
  Receive Date: 20110217
  Receipt Date: 20110201
  Transmission Date: 20110831
  Serious: Yes (Other)
  Sender: FDA-Public Use
  Company Number: CA-AMGEN-CANSP2011006137

PATIENT
  Age: 44 Year
  Sex: Male
  Weight: 59 kg

DRUGS (2)
  1. ENBREL [Suspect]
     Indication: RHEUMATOID ARTHRITIS
     Dates: start: 20110110
  2. METHOTREXATE [Concomitant]
     Route: 048

REACTIONS (5)
  - INJECTION SITE INDURATION [None]
  - INJECTION SITE REACTION [None]
  - INJECTION SITE PRURITUS [None]
  - PARAESTHESIA ORAL [None]
  - INJECTION SITE ERYTHEMA [None]
